FAERS Safety Report 7905559 (Version 3)
Quarter: 2013Q1

REPORT INFORMATION
  Report Type: Report from Study
  Country: US (occurrence: US)
  Receive Date: 20110419
  Receipt Date: 20130324
  Transmission Date: 20140127
  Serious: Yes (Other)
  Sender: FDA-Public Use
  Company Number: US-RB-025534-11

PATIENT
  Age: 48 Year
  Sex: Male

DRUGS (8)
  1. SUBOXONE FILM [Suspect]
     Indication: DRUG DEPENDENCE
     Dosage: SUBLINGUAL FILM
     Route: 060
  2. SUBOXONE FILM [Suspect]
     Dosage: SUBLINGUAL FILM; SOMETIMES HAD TO TAKE LESS
     Route: 060
  3. SUBOXONE FILM [Suspect]
     Dosage: SUBOXONE FILM; UNKNOWN DOSAGE - TAKING MORE THAN PRESCRIBED
     Route: 060
  4. SUBOXONE TABLET [Suspect]
     Indication: DRUG DEPENDENCE
     Route: 060
     Dates: start: 201101
  5. SUBOXONE TABLET [Suspect]
     Dosage: UNKNOWN DOSAGE OF TAKING MORE THAN PRESCRIBED
     Route: 060
  6. PROZAC [Suspect]
     Indication: DEPRESSION
     Dosage: DOSING INFORMATION UNKNOWN
     Route: 065
     Dates: end: 2012
  7. LISINOPRIL [Concomitant]
     Indication: HYPERTENSION
     Route: 048
  8. RISPERIDONE [Concomitant]
     Indication: BIPOLAR DISORDER
     Route: 048

REACTIONS (10)
  - Intentional overdose [Recovered/Resolved]
  - Malaise [Recovered/Resolved]
  - Convulsion [Recovered/Resolved]
  - Euphoric mood [Recovered/Resolved]
  - Fatigue [Recovered/Resolved]
  - Drug withdrawal syndrome [Recovered/Resolved]
  - Underdose [Recovered/Resolved]
  - Nervousness [Recovered/Resolved]
  - Abnormal dreams [Recovered/Resolved]
  - Crying [Recovered/Resolved]
